FAERS Safety Report 7755247-3 (Version None)
Quarter: 2011Q3

REPORT INFORMATION
  Report Type: 
  Country: None (occurrence: None)
  Receive Date: 20110913
  Receipt Date: 20110829
  Transmission Date: 20111222
  Serious: Yes (Hospitalization, Other)
  Sender: FDA-Public Use
  Company Number: 2011SP037669

PATIENT
  Sex: Female

DRUGS (5)
  1. TELAPREVIR [Suspect]
     Indication: HEPATITIS C
     Dates: start: 20110801
  2. PEG-INTRON [Suspect]
     Indication: HEPATITIS C
     Dates: start: 20110808
  3. RIBAVIRIN [Suspect]
     Indication: HEPATITIS C
     Dates: start: 20050610, end: 20060610
  4. RIBAVIRIN [Suspect]
     Indication: HEPATITIS C
     Dates: start: 20110810
  5. PEGASYS [Suspect]
     Indication: HEPATITIS C
     Dates: start: 20050610, end: 20060601

REACTIONS (12)
  - FATIGUE [None]
  - DEPRESSION [None]
  - AGITATION [None]
  - HEPATITIS C [None]
  - FEELING ABNORMAL [None]
  - GLAUCOMA [None]
  - CHOLELITHIASIS [None]
  - ANGER [None]
  - CHOLECYSTITIS INFECTIVE [None]
  - INSOMNIA [None]
  - MEMORY IMPAIRMENT [None]
  - DISEASE RECURRENCE [None]
